FAERS Safety Report 8243294-7 (Version None)
Quarter: 2012Q1

REPORT INFORMATION
  Report Type: 
  Country: None (occurrence: None)
  Receive Date: 20120329
  Receipt Date: 20120316
  Transmission Date: 20120608
  Serious: Yes (Death, Hospitalization)
  Sender: FDA-Public Use
  Company Number: DE-ROCHE-1050506

PATIENT
  Sex: Male

DRUGS (18)
  1. CALCIUM D3 [Concomitant]
     Route: 058
  2. PREDNISOLONE [Concomitant]
  3. PIPERACILLIN [Concomitant]
     Route: 042
     Dates: start: 20110704
  4. MOVIPREP [Concomitant]
  5. ALTINSULIN [Concomitant]
  6. DEXAMETHASONE [Concomitant]
  7. AMPHOTERICIN B [Concomitant]
  8. GELONIDA [Concomitant]
  9. FOLIC ACID [Concomitant]
  10. MABTHERA [Suspect]
     Indication: RHEUMATOID ARTHRITIS
     Dates: start: 20110701
  11. LEVEMIR [Concomitant]
  12. TORSEMIDE [Concomitant]
  13. BISOPROLOL FUMARATE [Concomitant]
  14. NEXIUM [Concomitant]
  15. VFEND [Concomitant]
  16. DURAGESIC-100 [Concomitant]
  17. COMBACTAM [Concomitant]
  18. ZOPLICONE (UNK INGREDIENTS) [Concomitant]
     Dosage: PRN

REACTIONS (2)
  - CARDIAC ARREST [None]
  - MYOCARDIAL INFARCTION [None]
